FAERS Safety Report 10331413 (Version 1)
Quarter: 2014Q3

REPORT INFORMATION
  Report Type: Spontaneous
  Country: US (occurrence: None)
  Receive Date: 20140721
  Receipt Date: 20140721
  Transmission Date: 20150326
  Serious: Yes (Other)
  Sender: FDA-Public Use
  Company Number: None

PATIENT
  Age: 25 Year
  Sex: Male
  Weight: 59.6 kg

DRUGS (16)
  1. ERAXIS [Suspect]
     Active Substance: ANIDULAFUNGIN
     Indication: ABDOMINAL SEPSIS
     Route: 042
     Dates: start: 20140519, end: 20140529
  2. INSULIN LISPRO [Concomitant]
     Active Substance: INSULIN LISPRO
  3. ACETAMINOPHEN. [Concomitant]
     Active Substance: ACETAMINOPHEN
  4. HYDROCORTISONE. [Concomitant]
     Active Substance: HYDROCORTISONE
  5. HUMULIN NOS [Concomitant]
     Active Substance: INSULIN HUMAN
  6. IPRATROPIUM-ALBUTEROL [Concomitant]
  7. MINERAL OIL. [Concomitant]
     Active Substance: MINERAL OIL
  8. VANCOMYCIN [Concomitant]
     Active Substance: VANCOMYCIN
  9. ACETYLCYSTEINE. [Suspect]
     Active Substance: ACETYLCYSTEINE
  10. INSULIN REGULAR [Concomitant]
     Active Substance: INSULIN NOS
  11. LEVOCARNITINE. [Concomitant]
     Active Substance: LEVOCARNITINE
  12. MEROPENEM. [Concomitant]
     Active Substance: MEROPENEM
  13. PROCHLORPERAZINE. [Concomitant]
     Active Substance: PROCHLORPERAZINE
  14. TRIAMCINOLONE [Concomitant]
     Active Substance: TRIAMCINOLONE
  15. LABETALOL [Concomitant]
     Active Substance: LABETALOL\LABETALOL HYDROCHLORIDE
  16. ONDANSETRON [Concomitant]
     Active Substance: ONDANSETRON

REACTIONS (2)
  - Gamma-glutamyltransferase increased [None]
  - Blood alkaline phosphatase increased [None]

NARRATIVE: CASE EVENT DATE: 20140528
